FAERS Safety Report 6261578-9 (Version None)
Quarter: 2009Q3

REPORT INFORMATION
  Report Type: 
  Country: None (occurrence: None)
  Receive Date: 20090702
  Receipt Date: 20090408
  Transmission Date: 20100115
  Serious: No
  Sender: FDA-Public Use
  Company Number: 1000005722

PATIENT
  Age: 68 Year
  Sex: Female

DRUGS (4)
  1. BYSTOLIC [Suspect]
     Indication: HYPERTENSION
     Dosage: 5 MG (5 MG,1 IN 1 D),ORAL : 2.5 MG (2.5 MG,1 IN 1 D),ORAL : 5 MG (5 MG,1 IN 1 D),ORAL
     Route: 048
     Dates: start: 20090101, end: 20090101
  2. BYSTOLIC [Suspect]
     Indication: HYPERTENSION
     Dosage: 5 MG (5 MG,1 IN 1 D),ORAL : 2.5 MG (2.5 MG,1 IN 1 D),ORAL : 5 MG (5 MG,1 IN 1 D),ORAL
     Route: 048
     Dates: start: 20090201, end: 20090101
  3. BYSTOLIC [Suspect]
     Indication: HYPERTENSION
     Dosage: 5 MG (5 MG,1 IN 1 D),ORAL : 2.5 MG (2.5 MG,1 IN 1 D),ORAL : 5 MG (5 MG,1 IN 1 D),ORAL
     Route: 048
     Dates: start: 20090101
  4. ZANTAC [Concomitant]

REACTIONS (1)
  - MIGRAINE [None]
